FAERS Safety Report 6437750-1 (Version None)
Quarter: 2009Q4

REPORT INFORMATION
  Report Type: 
  Country: None (occurrence: None)
  Receive Date: 20091112
  Receipt Date: 20091102
  Transmission Date: 20100525
  Serious: Yes (Hospitalization)
  Sender: FDA-Public Use
  Company Number: US-NOVOPROD-300231

PATIENT
  Sex: Female

DRUGS (2)
  1. NOVOLOG [Suspect]
     Indication: DIABETES MELLITUS
     Dosage: UNKNOWN
     Route: 058
     Dates: end: 20091001
  2. NOVOLOG [Suspect]
     Dosage: UNK
     Route: 058
     Dates: start: 20091101, end: 20091101

REACTIONS (3)
  - BRONCHITIS [None]
  - HEADACHE [None]
  - HYPERSENSITIVITY [None]
